FAERS Safety Report 6313348-0 (Version None)
Quarter: 2009Q3

REPORT INFORMATION
  Report Type: 
  Country: None (occurrence: None)
  Receive Date: 20090818
  Receipt Date: 20090810
  Transmission Date: 20100115
  Serious: Yes (Other)
  Sender: FDA-Public Use
  Company Number: DE-GENENTECH-288506

PATIENT
  Age: 19 Year
  Sex: Female

DRUGS (1)
  1. RITUXIMAB [Suspect]
     Indication: NEUROMYELITIS OPTICA
     Dosage: 1 G, X2
     Dates: start: 20070201

REACTIONS (1)
  - NEUROMYELITIS OPTICA [None]
